FAERS Safety Report 18014937 (Version 1)
Quarter: 2020Q3

REPORT INFORMATION
  Report Type: Spontaneous
  Country: US (occurrence: US)
  Receive Date: 20200713
  Receipt Date: 20200713
  Transmission Date: 20201103
  Serious: No
  Sender: FDA-Public Use
  Company Number: US-ELI_LILLY_AND_COMPANY-US202007001450

PATIENT
  Age: 48 Year
  Sex: Female

DRUGS (1)
  1. EMGALITY [Suspect]
     Active Substance: GALCANEZUMAB-GNLM
     Indication: PRODUCT USED FOR UNKNOWN INDICATION
     Dosage: UNK, UNKNOWN
     Route: 065
     Dates: start: 2019

REACTIONS (6)
  - Migraine [Unknown]
  - Bronchitis [Unknown]
  - Therapeutic response shortened [Unknown]
  - Influenza [Unknown]
  - Upper-airway cough syndrome [Unknown]
  - Pharyngitis [Unknown]

NARRATIVE: CASE EVENT DATE: 202002
